FAERS Safety Report 21075869 (Version 3)
Quarter: 2022Q3

REPORT INFORMATION
  Report Type: Report from Study
  Country: IT (occurrence: IT)
  Receive Date: 20220713
  Receipt Date: 20220901
  Transmission Date: 20221027
  Serious: Yes (Hospitalization)
  Sender: FDA-Public Use
  Company Number: IT-PFIZER INC-PV202200015175

PATIENT
  Age: 39 Year
  Sex: Female

DRUGS (23)
  1. MYLOTARG [Suspect]
     Active Substance: GEMTUZUMAB OZOGAMICIN
     Indication: Acute myeloid leukaemia
     Dosage: 5 MG, DAILY (ONCE ON DAY 1, 3, 5)
     Route: 042
     Dates: start: 20220610, end: 20220610
  2. MYLOTARG [Suspect]
     Active Substance: GEMTUZUMAB OZOGAMICIN
     Dosage: 5 MG, DAILY(ONCE ON DAY 1, 3, 5)
     Route: 042
     Dates: start: 20220613, end: 20220613
  3. MYLOTARG [Suspect]
     Active Substance: GEMTUZUMAB OZOGAMICIN
     Dosage: 5 MG, DAILY (ONCE ON DAY 1, 3, 5)
     Route: 042
     Dates: start: 20220616, end: 20220616
  4. NOXAFIL [Concomitant]
     Active Substance: POSACONAZOLE
     Dosage: 300 MG, 2X/DAY (AT 8:00 AND 20:00)
     Route: 048
     Dates: start: 20220611, end: 20220611
  5. NOXAFIL [Concomitant]
     Active Substance: POSACONAZOLE
     Dosage: 300 MG, 1X/DAY (AT 8:00)
     Route: 048
     Dates: start: 20220612, end: 20220627
  6. ACYCLOVIR [Concomitant]
     Active Substance: ACYCLOVIR
     Dosage: 400 MG, 2X/DAY (1 DF AT 8:00, 1 DF AT 20:00)
     Route: 048
     Dates: start: 20220602, end: 20220627
  7. LANSOPRAZOLO EG [Concomitant]
     Dosage: 15 MG, 1X/DAY (AT 20:00)
     Route: 048
     Dates: start: 20220531
  8. TRIMETON [Concomitant]
     Active Substance: CHLORPHENIRAMINE MALEATE
     Dosage: 10 MG, DAILY (WITH NORMAL SALINE (250 ML) 120 MIN-41.67 DROPS/MIN- 125 ML/H )
     Route: 042
     Dates: start: 20220610, end: 20220610
  9. TRIMETON [Concomitant]
     Active Substance: CHLORPHENIRAMINE MALEATE
     Dosage: 10 MG, DAILY (WITH NORMAL SALINE (250 ML) 120 MIN - 41.67 DROPS/MIN - 125 ML/H)
     Route: 042
     Dates: start: 20220613, end: 20220613
  10. TRIMETON [Concomitant]
     Active Substance: CHLORPHENIRAMINE MALEATE
     Dosage: 10 MG, DAILY (WITH NORMAL SALINE (250 ML) 120 MIN - 41.67 DROPS/MIN - 125 ML/H )
     Route: 042
     Dates: start: 20220616, end: 20220616
  11. TACHIPIRINA [Concomitant]
     Active Substance: ACETAMINOPHEN
     Dosage: 1000 MG, 1X/DAY (AT 10:30)
     Route: 048
     Dates: start: 20220610, end: 20220610
  12. TACHIPIRINA [Concomitant]
     Active Substance: ACETAMINOPHEN
     Dosage: 1000 MG, 1X/DAY (AT 10:30)
     Route: 048
     Dates: start: 20220613, end: 20220613
  13. TACHIPIRINA [Concomitant]
     Active Substance: ACETAMINOPHEN
     Dosage: 1000 MG, 1X/DAY (AT 10:30)
     Route: 048
     Dates: start: 20220616, end: 20220616
  14. METHYLPREDNISOLONE SODIUM SUCCINATE [Concomitant]
     Active Substance: METHYLPREDNISOLONE SODIUM SUCCINATE
     Dosage: 20 MG, 1X/DAY (AT 11:00)
     Route: 042
     Dates: start: 20220610, end: 20220610
  15. METHYLPREDNISOLONE SODIUM SUCCINATE [Concomitant]
     Active Substance: METHYLPREDNISOLONE SODIUM SUCCINATE
     Dosage: 20 MG, 2X/DAY (AT 11:00, AT 23:00)
     Route: 042
     Dates: start: 20220610, end: 20220616
  16. METHYLPREDNISOLONE SODIUM SUCCINATE [Concomitant]
     Active Substance: METHYLPREDNISOLONE SODIUM SUCCINATE
     Dosage: 20 MG, 1X/DAY (AT 11:00)
     Route: 042
     Dates: start: 20220613, end: 20220613
  17. METHYLPREDNISOLONE SODIUM SUCCINATE [Concomitant]
     Active Substance: METHYLPREDNISOLONE SODIUM SUCCINATE
     Dosage: 20 MG, 1X/DAY (AT 11:00)
     Route: 042
     Dates: start: 20220616, end: 20220616
  18. CYTARABINE [Concomitant]
     Active Substance: CYTARABINE
     Dosage: 376.4 MG, 1X/DAY
     Route: 042
     Dates: start: 20220610, end: 20220616
  19. DAUNORUBICIN [Concomitant]
     Active Substance: DAUNORUBICIN
     Dosage: 112.92 MG, DAILY(WITH NORMAL SALINE 1000 (100 ML) 20 MIN - 100 DROPS/MIN - 300 ML/H)
     Route: 042
     Dates: start: 20220610, end: 20220612
  20. ZOFRAN [Concomitant]
     Active Substance: ONDANSETRON HYDROCHLORIDE
     Dosage: 8 MG, 3X/DAY (AT 10:00,16:00 AND 23:00)
     Route: 042
     Dates: start: 20220610, end: 20220616
  21. PIPERACILLIN SODIUM\TAZOBACTAM SODIUM [Concomitant]
     Active Substance: PIPERACILLIN SODIUM\TAZOBACTAM SODIUM
     Dosage: 1 DF, 3X/DAY (1 VIAL 4 G/0.5 G ( 1VIAL AT 6, 15 AND 23)
     Route: 042
     Dates: start: 20220610, end: 20220615
  22. ALLOPURINOL [Concomitant]
     Active Substance: ALLOPURINOL
     Dosage: 300 MG, 1X/DAY (AT 13:00)
     Route: 048
     Dates: start: 20220602, end: 20220614
  23. TARGOSID [Concomitant]
     Active Substance: TEICOPLANIN
     Dosage: 400 MG, 1X/DAY (AT 15:00)
     Route: 042
     Dates: start: 20220602, end: 20220605

REACTIONS (1)
  - Enterococcal sepsis [Recovered/Resolved]

NARRATIVE: CASE EVENT DATE: 20220618
